FAERS Safety Report 4384420-X (Version None)
Quarter: 2004Q2

REPORT INFORMATION
  Report Type: 
  Country: None (occurrence: None)
  Receive Date: 20040624
  Receipt Date: 20040621
  Transmission Date: 20050107
  Serious: Yes (Other)
  Sender: FDA-Public Use
  Company Number: NL-GLAXOSMITHKLINE-B0336416A

PATIENT
  Sex: Male

DRUGS (1)
  1. SEROXAT [Suspect]

REACTIONS (4)
  - ACUTE PSYCHOSIS [None]
  - AMNESIA [None]
  - DISABILITY [None]
  - DISTURBANCE IN ATTENTION [None]
